FAERS Safety Report 24755824 (Version 1)
Quarter: 2024Q4

REPORT INFORMATION
  Report Type: Spontaneous
  Country: CN (occurrence: CN)
  Receive Date: 20241219
  Receipt Date: 20241219
  Transmission Date: 20250114
  Serious: Yes (Hospitalization, Other)
  Sender: MERCK
  Company Number: CN-009507513-2412CHN005637

PATIENT
  Age: 55 Year
  Sex: Female
  Weight: 71.2 kg

DRUGS (3)
  1. KEYTRUDA [Suspect]
     Active Substance: PEMBROLIZUMAB
     Indication: Lung adenocarcinoma
     Dosage: 200 MILLIGRAM, ONCE
     Route: 041
     Dates: start: 20240930, end: 20240930
  2. CARBOPLATIN [Suspect]
     Active Substance: CARBOPLATIN
     Indication: Lung adenocarcinoma
     Dosage: 0.5 GRAM, ONCE
     Route: 041
     Dates: start: 20240930, end: 20240930
  3. PEMETREXED DISODIUM [Suspect]
     Active Substance: PEMETREXED DISODIUM
     Indication: Lung adenocarcinoma
     Dosage: 800 MILLIGRAM, ONCE
     Route: 041
     Dates: start: 20240930, end: 20240930

REACTIONS (5)
  - Myocardial injury [Recovering/Resolving]
  - Acute coronary syndrome [Unknown]
  - Melaena [Unknown]
  - Nasal crusting [Unknown]
  - Dizziness [Unknown]

NARRATIVE: CASE EVENT DATE: 20240101
